FAERS Safety Report 7027652-4 (Version None)
Quarter: 2010Q4

REPORT INFORMATION
  Report Type: 
  Country: None (occurrence: None)
  Receive Date: 20101004
  Receipt Date: 20100921
  Transmission Date: 20110411
  Serious: Yes (Other)
  Sender: FDA-Public Use
  Company Number: US-WATSON-2010-12986

PATIENT
  Age: 42 Year
  Sex: Male

DRUGS (2)
  1. CABERGOLINE [Suspect]
     Indication: PROLACTINOMA
     Dosage: 0.5 MG, 6/WEEKLY
  2. CABERGOLINE [Suspect]
     Dosage: 0.5 MG, 3/WEEK

REACTIONS (1)
  - INTRACRANIAL HYPOTENSION [None]
